FAERS Safety Report 14457903 (Version 2)
Quarter: 2018Q2

REPORT INFORMATION
  Report Type: Other
  Country: CA (occurrence: CA)
  Receive Date: 20180130
  Receipt Date: 20180422
  Transmission Date: 20180711
  Serious: Yes (Other)
  Sender: FDA-Public Use
  Company Number: CA-APOTEX-2018AP005621

PATIENT
  Age: 54 Year
  Sex: Female

DRUGS (2)
  1. MEPOLIZUMAB [Suspect]
     Active Substance: MEPOLIZUMAB
     Indication: ASTHMA
     Dosage: 100 MG, UNK
     Route: 042
  2. SALBUTAMOL [Suspect]
     Active Substance: ALBUTEROL
     Indication: PRODUCT USED FOR UNKNOWN INDICATION
     Dosage: UNK
     Route: 065

REACTIONS (9)
  - Vision blurred [Recovering/Resolving]
  - Sinus disorder [Recovering/Resolving]
  - Lower respiratory tract infection [Recovering/Resolving]
  - Productive cough [Recovering/Resolving]
  - Pneumonia [Recovering/Resolving]
  - Headache [Recovering/Resolving]
  - Irritable bowel syndrome [Recovering/Resolving]
  - Blood pressure increased [Recovering/Resolving]
  - Infection [Recovering/Resolving]
